FAERS Safety Report 22115785 (Version 1)
Quarter: 2023Q1

REPORT INFORMATION
  Report Type: Spontaneous
  Country: US (occurrence: None)
  Receive Date: 20230319
  Receipt Date: 20230319
  Transmission Date: 20230418
  Serious: No
  Sender: FDA-Public Use
  Company Number: None

PATIENT
  Age: 36 Year
  Sex: Male
  Weight: 117 kg

DRUGS (7)
  1. ARIPIPRAZOLE [Suspect]
     Active Substance: ARIPIPRAZOLE
     Indication: Depression
     Dates: end: 20230317
  2. VENLAFAXINE [Concomitant]
     Active Substance: VENLAFAXINE HYDROCHLORIDE
  3. PHENTERMINE [Concomitant]
     Active Substance: PHENTERMINE
  4. FINASTERIDE [Concomitant]
     Active Substance: FINASTERIDE
  5. trazedone [Concomitant]
  6. DESCOVY [Concomitant]
     Active Substance: EMTRICITABINE\TENOFOVIR ALAFENAMIDE FUMARATE
  7. DEVICE [Concomitant]
     Active Substance: DEVICE

REACTIONS (3)
  - Speech disorder [None]
  - Constipation [None]
  - Incorrect dose administered [None]

NARRATIVE: CASE EVENT DATE: 20230216
